FAERS Safety Report 5225007-6 (Version None)
Quarter: 2007Q1

REPORT INFORMATION
  Report Type: 
  Country: None (occurrence: None)
  Receive Date: 20070126
  Receipt Date: 20070119
  Transmission Date: 20070707
  Serious: Yes (Hospitalization)
  Sender: FDA-Public Use
  Company Number: HQWYE936109NOV06

PATIENT
  Age: 61 Year
  Sex: Male

DRUGS (5)
  1. RAPAMUNE [Suspect]
     Indication: PROPHYLAXIS AGAINST TRANSPLANT REJECTION
     Dosage: 2 MG/FREQUENCY NOT PROVIDED, ORAL
     Route: 048
     Dates: start: 20040323
  2. ASPIRIN [Concomitant]
  3. FAMVIR [Concomitant]
  4. FLUVASTATIN [Concomitant]
  5. RAMIPRIL [Concomitant]

REACTIONS (3)
  - HAEMANGIOMA [None]
  - HEPATIC CANCER METASTATIC [None]
  - METASTASES TO SKIN [None]
